FAERS Safety Report 5713040-7 (Version None)
Quarter: 2008Q2

REPORT INFORMATION
  Report Type: 
  Country: None (occurrence: None)
  Receive Date: 20080422
  Receipt Date: 20080411
  Transmission Date: 20081010
  Serious: Yes (Other)
  Sender: FDA-Public Use
  Company Number: JP-ASTRAZENECA-2008AP00575

PATIENT
  Age: 6540 Day
  Sex: Male

DRUGS (3)
  1. SEROQUEL [Suspect]
     Indication: TENSION
     Route: 048
     Dates: start: 20071218, end: 20071219
  2. LEXOTAN [Concomitant]
     Indication: ANXIETY
     Route: 048
     Dates: start: 20071218, end: 20071219
  3. AMOXAN [Concomitant]
     Indication: DEPRESSED MOOD
     Route: 048
     Dates: start: 20071218, end: 20071219

REACTIONS (2)
  - DEPRESSED LEVEL OF CONSCIOUSNESS [None]
  - DYSPNOEA [None]
